FAERS Safety Report 10588642 (Version 2)
Quarter: 2014Q4

REPORT INFORMATION
  Report Type: Spontaneous
  Country: JP (occurrence: JP)
  Receive Date: 20141117
  Receipt Date: 20141205
  Transmission Date: 20150529
  Serious: Yes (Hospitalization)
  Sender: FDA-Public Use
  Company Number: JP-SA-2014SA156249

PATIENT
  Age: 78 Year
  Sex: Male

DRUGS (2)
  1. BCG FOR IMMUNOTHERAPY [Suspect]
     Active Substance: BACILLUS CALMETTE-GUERIN SUBSTRAIN TICE LIVE ANTIGEN
     Indication: URINARY TRACT CARCINOMA IN SITU
     Route: 065
  2. IMMUNOBLADDER [Suspect]
     Active Substance: BCG VACCINE
     Indication: URINARY TRACT CARCINOMA IN SITU
     Route: 065

REACTIONS (5)
  - Chills [Unknown]
  - Blood pressure decreased [Unknown]
  - Disseminated intravascular coagulation [Unknown]
  - Bovine tuberculosis [Unknown]
  - Septic shock [Unknown]
